FAERS Safety Report 6389776-4 (Version None)
Quarter: 2009Q4

REPORT INFORMATION
  Report Type: 
  Country: None (occurrence: None)
  Receive Date: 20091006
  Receipt Date: 20090924
  Transmission Date: 20100525
  Serious: Yes (Other)
  Sender: FDA-Public Use
  Company Number: US-PFIZER INC-2006048664

PATIENT
  Sex: Female

DRUGS (13)
  1. PROVERA [Suspect]
     Indication: HORMONE REPLACEMENT THERAPY
     Dosage: UNK
     Route: 048
     Dates: start: 19910101, end: 19940101
  2. PREMARIN [Suspect]
     Indication: HORMONE REPLACEMENT THERAPY
     Dosage: UNK
     Route: 065
     Dates: start: 19910101, end: 19940101
  3. PREMPRO [Suspect]
     Indication: HORMONE REPLACEMENT THERAPY
     Dosage: UNK
     Route: 065
     Dates: start: 19940101, end: 20020101
  4. SYNTHROID [Concomitant]
     Indication: HYPOTHYROIDISM
     Dosage: UNK
     Dates: start: 19630101
  5. VICODIN [Concomitant]
     Indication: CARPAL TUNNEL SYNDROME
     Dosage: UNK
     Dates: start: 19980101
  6. VICODIN [Concomitant]
     Indication: BACK PAIN
  7. VICODIN [Concomitant]
     Indication: PAIN IN EXTREMITY
  8. METOPROLOL [Concomitant]
     Indication: BLOOD PRESSURE
     Dosage: UNK
     Dates: start: 20010101
  9. LEVOXYL [Concomitant]
     Indication: THYROID DISORDER
     Dosage: UNK
     Dates: start: 20010101
  10. CYCLOBENZAPRINE [Concomitant]
     Indication: MUSCLE SPASMS
     Dosage: UNK
     Dates: start: 20010101
  11. FIORINAL [Concomitant]
     Indication: HEADACHE
     Dosage: UNK
     Dates: start: 19860101
  12. FIORICET [Concomitant]
     Indication: HEADACHE
     Dosage: UNK
     Dates: start: 20010101
  13. ULTRAM [Concomitant]
     Dosage: UNK
     Dates: start: 20010101

REACTIONS (1)
  - BREAST CANCER [None]
